FAERS Safety Report 9254899 (Version 2)
Quarter: 2013Q3

REPORT INFORMATION
  Report Type: Report from Study
  Country: DE (occurrence: DE)
  Receive Date: 20130425
  Receipt Date: 20130923
  Transmission Date: 20140515
  Serious: Yes (Hospitalization)
  Sender: FDA-Public Use
  Company Number: PHHO2013DE005634

PATIENT
  Age: 56 Year
  Sex: Female
  Weight: 50 kg

DRUGS (7)
  1. AMN107 [Suspect]
     Indication: CHRONIC MYELOID LEUKAEMIA
     Dosage: 300 MG, BID
     Route: 048
     Dates: start: 20130220, end: 20130417
  2. AMN107 [Suspect]
     Dosage: 300 MG, BID
     Route: 048
     Dates: start: 20130525, end: 20130603
  3. BICANORM [Concomitant]
     Dosage: UNK
     Dates: start: 20130403
  4. ALLOPURINOL [Concomitant]
     Dosage: 100 MG, QD
     Dates: start: 20130403
  5. BISOPROLOL [Concomitant]
     Indication: HYPERTENSION
     Dosage: 5 MG, QD
  6. SAB SIMPLEX [Concomitant]
     Indication: FLATULENCE
     Dosage: UNK
     Dates: start: 20130403
  7. KALIUM CHLORID [Concomitant]
     Indication: PROPHYLAXIS
     Dosage: 600 MG, QD
     Dates: start: 20130403

REACTIONS (2)
  - Ileus [Recovered/Resolved]
  - Peritonitis [Recovered/Resolved]
